FAERS Safety Report 5088903-9 (Version None)
Quarter: 2006Q3

REPORT INFORMATION
  Report Type: 
  Country: None (occurrence: None)
  Receive Date: 20060825
  Receipt Date: 20060612
  Transmission Date: 20061208
  Serious: Yes (Hospitalization)
  Sender: FDA-Public Use
  Company Number: CM-MERCK-0606USA01897

PATIENT
  Age: 35 Year
  Sex: Male

DRUGS (1)
  1. STROMECTOL [Suspect]
     Route: 048
     Dates: start: 20060521, end: 20060521

REACTIONS (6)
  - COMA [None]
  - DECUBITUS ULCER [None]
  - ENCEPHALOPATHY [None]
  - HEADACHE [None]
  - PAIN [None]
  - VISION BLURRED [None]
